FAERS Safety Report 5324120-2 (Version None)
Quarter: 2007Q2

REPORT INFORMATION
  Report Type: 
  Country: None (occurrence: None)
  Receive Date: 20070514
  Receipt Date: 20060711
  Transmission Date: 20071010
  Serious: No
  Sender: FDA-Public Use
  Company Number: A0611830A

PATIENT
  Sex: Male

DRUGS (4)
  1. NABUMETONE [Suspect]
     Indication: DRUG USE FOR UNKNOWN INDICATION
     Dosage: 750MG TWICE PER DAY
     Route: 048
  2. ASPIRIN [Concomitant]
  3. VITAMINS [Concomitant]
  4. VITAMIN E [Concomitant]

REACTIONS (1)
  - DRUG INEFFECTIVE [None]
